FAERS Safety Report 10758719 (Version 1)
Quarter: 2015Q1

REPORT INFORMATION
  Report Type: Report from Study
  Country: NZ (occurrence: SE)
  Receive Date: 20150203
  Receipt Date: 20150203
  Transmission Date: 20150721
  Serious: Yes (Other)
  Sender: FDA-Public Use
  Company Number: NZ-PFIZER INC-2015041669

PATIENT
  Sex: Female

DRUGS (2)
  1. VARENICLINE TARTRATE [Suspect]
     Active Substance: VARENICLINE TARTRATE
     Indication: ANXIETY
     Dosage: UNK
  2. PAROXETINE [Concomitant]
     Active Substance: PAROXETINE\PAROXETINE HYDROCHLORIDE
     Indication: ANXIETY
     Dosage: UNK

REACTIONS (5)
  - Somnambulism [Recovered/Resolved]
  - Intentional self-injury [Recovered/Resolved]
  - Abnormal behaviour [Recovered/Resolved]
  - Thermal burn [Recovered/Resolved]
  - Amnesia [Recovered/Resolved]
